FAERS Safety Report 6615524-6 (Version None)
Quarter: 2010Q1

REPORT INFORMATION
  Report Type: 
  Country: None (occurrence: None)
  Receive Date: 20100305
  Receipt Date: 20100225
  Transmission Date: 20100710
  Serious: Yes (Hospitalization, Other)
  Sender: FDA-Public Use
  Company Number: BR-BAYER-200818097LA

PATIENT
  Age: 41 Year
  Sex: Female

DRUGS (8)
  1. BETAFERON [Suspect]
     Indication: MULTIPLE SCLEROSIS
     Dosage: BETAJECT
     Route: 058
     Dates: start: 20040101, end: 20080915
  2. BETAFERON [Suspect]
     Dosage: BETAJECT
     Route: 058
     Dates: end: 20091101
  3. DEFLAZACORT [Concomitant]
     Dosage: TOTAL DAILY DOSE: 6 MG  UNIT DOSE: 6 MG
     Route: 048
     Dates: start: 20040101
  4. AZATHIOPRINE [Concomitant]
     Indication: MULTIPLE SCLEROSIS
     Dosage: TOTAL DAILY DOSE: 1 DF
     Route: 048
     Dates: start: 20040101
  5. FLUOXETINE [Concomitant]
     Indication: PROPHYLAXIS
     Dosage: TOTAL DAILY DOSE: 20 MG  UNIT DOSE: 20 MG
     Route: 048
     Dates: start: 20030101
  6. CALCIUM [Concomitant]
     Route: 048
     Dates: start: 19940101
  7. HORMONES [Concomitant]
     Dosage: TOTAL DAILY DOSE: 1 DF
     Route: 048
  8. ZIPRASIDONE HCL [Concomitant]
     Indication: MENTAL DISORDER

REACTIONS (18)
  - ANAEMIA [None]
  - ANAEMIA MEGALOBLASTIC [None]
  - BURNING SENSATION [None]
  - INFECTION [None]
  - INJECTION SITE CELLULITIS [None]
  - INJECTION SITE DISCOLOURATION [None]
  - INJECTION SITE ERYTHEMA [None]
  - INJECTION SITE INDURATION [None]
  - INJECTION SITE INFECTION [None]
  - INJECTION SITE NECROSIS [None]
  - INJECTION SITE OEDEMA [None]
  - INJECTION SITE PAIN [None]
  - INJECTION SITE ULCER [None]
  - INJECTION SITE WARMTH [None]
  - MUSCLE RIGIDITY [None]
  - OSTEOPOROSIS [None]
  - PAIN IN EXTREMITY [None]
  - SEPSIS [None]
